FAERS Safety Report 4633260-2 (Version None)
Quarter: 2005Q2

REPORT INFORMATION
  Report Type: 
  Country: None (occurrence: None)
  Receive Date: 20050408
  Receipt Date: 20050316
  Transmission Date: 20051028
  Serious: No
  Sender: FDA-Public Use
  Company Number: 2005AP02042

PATIENT

DRUGS (13)
  1. XYLOCAINE [Suspect]
     Indication: LONG QT SYNDROME
     Dosage: COMMENCED AT 28 WEEKS GESTATION
  2. XYLOCAINE [Suspect]
     Indication: VENTRICULAR TACHYCARDIA
     Dosage: COMMENCED AT 28 WEEKS GESTATION
  3. INDERAL [Suspect]
     Indication: LONG QT SYNDROME
     Dosage: COMMENCED AT 28 WEEKS GESTATION
  4. INDERAL [Suspect]
     Indication: VENTRICULAR TACHYCARDIA
     Dosage: COMMENCED AT 28 WEEKS GESTATION
  5. INDERAL [Suspect]
     Indication: ELECTROCARDIOGRAM QT PROLONGED
     Dosage: DOSE INCREASED AT 31 WEEKS 2 DAYS GESTATION
  6. INDERAL [Suspect]
     Indication: VENTRICULAR TACHYCARDIA
     Dosage: DOSE INCREASED AT 31 WEEKS 2 DAYS GESTATION
  7. MAGNESIUM SULFATE [Suspect]
     Indication: LONG QT SYNDROME
     Dosage: COMMENCED AT 28 WEEKS GESTATION
  8. MAGNESIUM SULFATE [Suspect]
     Indication: VENTRICULAR TACHYCARDIA
     Dosage: COMMENCED AT 28 WEEKS GESTATION
  9. MAGNESIUM SULFATE [Suspect]
     Indication: LONG QT SYNDROME
     Dosage: DOSE INCREASED AT 31 WEEKS 2 DAYS GESTATION
  10. MAGNESIUM SULFATE [Suspect]
     Indication: VENTRICULAR TACHYCARDIA
     Dosage: DOSE INCREASED AT 31 WEEKS 2 DAYS GESTATION
  11. MEXILETINE HCL [Suspect]
     Indication: LONG QT SYNDROME
     Dosage: COMMENCED AT 31 WEEKS 2 DAYS GESTATION
  12. MEXILETINE HCL [Suspect]
     Indication: VENTRICULAR TACHYCARDIA
     Dosage: COMMENCED AT 31 WEEKS 2 DAYS GESTATION
  13. DEXAMETHASONE [Concomitant]

REACTIONS (8)
  - BRADYCARDIA NEONATAL [None]
  - CARDIOMEGALY [None]
  - DRUG EXPOSURE DURING PREGNANCY [None]
  - HYPERLACTACIDAEMIA [None]
  - NEONATAL DISORDER [None]
  - PREMATURE BABY [None]
  - TACHYCARDIA FOETAL [None]
  - TORSADE DE POINTES [None]
